FAERS Safety Report 20645402 (Version 1)
Quarter: 2022Q1

REPORT INFORMATION
  Report Type: Spontaneous
  Country: US (occurrence: None)
  Receive Date: 20220328
  Receipt Date: 20220328
  Transmission Date: 20220423
  Serious: No
  Sender: FDA-Public Use
  Company Number: None

PATIENT
  Sex: Female

DRUGS (1)
  1. QULIPTA [Suspect]
     Active Substance: ATOGEPANT
     Indication: Migraine
     Dosage: 1 TABLET DAILY ORAL?
     Route: 048
     Dates: start: 20220201, end: 20220328

REACTIONS (4)
  - Anxiety [None]
  - Agitation [None]
  - Insomnia [None]
  - Tachyphrenia [None]

NARRATIVE: CASE EVENT DATE: 20220327
